FAERS Safety Report 17973300 (Version 3)
Quarter: 2020Q3

REPORT INFORMATION
  Report Type: Other
  Country: US (occurrence: US)
  Receive Date: 20200702
  Receipt Date: 20200727
  Transmission Date: 20201103
  Serious: Yes (Other)
  Sender: FDA-Public Use
  Company Number: US-ROCHE-2635107

PATIENT
  Sex: Female

DRUGS (6)
  1. ACTEMRA [Suspect]
     Active Substance: TOCILIZUMAB
     Indication: FACTOR I DEFICIENCY
  2. ACTEMRA [Suspect]
     Active Substance: TOCILIZUMAB
     Indication: ADVERSE DRUG REACTION
  3. ACTEMRA [Suspect]
     Active Substance: TOCILIZUMAB
     Indication: HAEMORRHAGE IN PREGNANCY
  4. ACTEMRA [Suspect]
     Active Substance: TOCILIZUMAB
     Indication: THYROIDITIS ACUTE
  5. ACTEMRA [Suspect]
     Active Substance: TOCILIZUMAB
     Indication: RHEUMATOID ARTHRITIS
     Dosage: INJECT 162MG SUBCUTANEOUSLY EVERY WEEK,ONGOING?UNKNOWN
     Route: 058
  6. ACTEMRA [Suspect]
     Active Substance: TOCILIZUMAB
     Indication: DIABETES INSIPIDUS

REACTIONS (1)
  - Transient ischaemic attack [Unknown]
